FAERS Safety Report 11037963 (Version 3)
Quarter: 2015Q3

REPORT INFORMATION
  Report Type: Spontaneous
  Country: US (occurrence: US)
  Receive Date: 20150416
  Receipt Date: 20150820
  Transmission Date: 20151125
  Serious: Yes (Death, Hospitalization, Other)
  Sender: FDA-Public Use
  Company Number: US-009507513-1504USA015483

PATIENT
  Sex: Male
  Weight: 70.75 kg

DRUGS (1)
  1. JANUVIA [Suspect]
     Active Substance: SITAGLIPTIN PHOSPHATE
     Indication: TYPE 2 DIABETES MELLITUS
     Dosage: 100 MG, QD
     Route: 048
     Dates: start: 20100622, end: 201105

REACTIONS (16)
  - Sepsis [Unknown]
  - Pancreatic stent placement [Unknown]
  - Dehydration [Unknown]
  - Deafness [Unknown]
  - Hypertension [Unknown]
  - Pancreatic carcinoma metastatic [Fatal]
  - Hypoglycaemia [Unknown]
  - Cholelithiasis [Unknown]
  - Rales [Unknown]
  - Constipation [Unknown]
  - Sinusitis [Unknown]
  - Asthma [Unknown]
  - Wound [Unknown]
  - Exostosis [Unknown]
  - Insulin-requiring type 2 diabetes mellitus [Unknown]
  - Diabetes mellitus inadequate control [Unknown]

NARRATIVE: CASE EVENT DATE: 20100920
